FAERS Safety Report 5045801-4 (Version None)
Quarter: 2006Q2

REPORT INFORMATION
  Report Type: 
  Country: None (occurrence: None)
  Receive Date: 20060601
  Receipt Date: 20060324
  Transmission Date: 20061013
  Serious: No
  Sender: FDA-Public Use
  Company Number: 2005-BP-20715BP

PATIENT
  Age: 79 Year
  Sex: Female

DRUGS (10)
  1. SPIRIVA [Suspect]
     Indication: CHRONIC OBSTRUCTIVE PULMONARY DISEASE
     Dosage: 18 MCG (18 MCG), IH
     Route: 055
     Dates: start: 20050531
  2. SPIRIVA [Suspect]
  3. SPIRIVA [Suspect]
  4. FLU SHOT (INFLUENZA VACCINE) [Suspect]
     Indication: PROPHYLAXIS
  5. LOTREL [Concomitant]
  6. SYNTHROID [Concomitant]
  7. LASIX [Concomitant]
  8. ACTONEL [Concomitant]
  9. WARFARIN SODIUM [Concomitant]
  10. VITAMINS [Concomitant]

REACTIONS (7)
  - ALCOHOL INTOLERANCE [None]
  - DIZZINESS [None]
  - DRUG EFFECT DECREASED [None]
  - DRY MOUTH [None]
  - DYSPHONIA [None]
  - DYSPNOEA [None]
  - LIP DRY [None]
